FAERS Safety Report 13651814 (Version 1)
Quarter: 2017Q2

REPORT INFORMATION
  Report Type: Report from Study
  Country: AU (occurrence: AU)
  Receive Date: 20170614
  Receipt Date: 20170614
  Transmission Date: 20170830
  Serious: Yes (Other)
  Sender: FDA-Public Use
  Company Number: AU-BIOGEN-2016BI00192084

PATIENT
  Age: 45 Year
  Sex: Female

DRUGS (8)
  1. TECFIDERA [Suspect]
     Active Substance: DIMETHYL FUMARATE
     Indication: MULTIPLE SCLEROSIS
     Dosage: STARTING DOSE
     Route: 048
     Dates: start: 20160120, end: 20160127
  2. TECFIDERA [Suspect]
     Active Substance: DIMETHYL FUMARATE
     Dosage: MAINTENANCE DOSE
     Route: 048
     Dates: start: 20160215
  3. TECFIDERA [Suspect]
     Active Substance: DIMETHYL FUMARATE
     Route: 048
     Dates: start: 20160128, end: 20160220
  4. TECFIDERA [Suspect]
     Active Substance: DIMETHYL FUMARATE
     Route: 048
     Dates: start: 20160120
  5. TECFIDERA [Suspect]
     Active Substance: DIMETHYL FUMARATE
     Dosage: STARTING DOSE
     Route: 048
     Dates: start: 20160120
  6. TECFIDERA [Suspect]
     Active Substance: DIMETHYL FUMARATE
     Route: 048
     Dates: start: 20160307
  7. TECFIDERA [Suspect]
     Active Substance: DIMETHYL FUMARATE
     Dosage: 240MG EVERY MANE AND ALTERNATING NOCTE DOSES OF 120MG ONE NIGHT AND THE NEXT 240MG
     Route: 048
     Dates: start: 20160307
  8. TECFIDERA [Suspect]
     Active Substance: DIMETHYL FUMARATE
     Dosage: 240MG EVERY MANE AND ALTERNATING NOCTE DOSES OF 120MG ONE NIGHT AND THE NEXT 240MG
     Route: 048
     Dates: start: 20160307

REACTIONS (22)
  - Paraesthesia [Not Recovered/Not Resolved]
  - Bone neoplasm [Not Recovered/Not Resolved]
  - Fatigue [Unknown]
  - Psoriasis [Unknown]
  - Weight increased [Unknown]
  - Feeling abnormal [Not Recovered/Not Resolved]
  - Underdose [Recovered/Resolved]
  - Depressed mood [Unknown]
  - Gastrooesophageal reflux disease [Unknown]
  - Multiple sclerosis relapse [Not Recovered/Not Resolved]
  - Tendonitis [Unknown]
  - Neurological symptom [Unknown]
  - Hot flush [Recovered/Resolved]
  - Sleep disorder [Unknown]
  - Influenza [Unknown]
  - Intervertebral disc disorder [Not Recovered/Not Resolved]
  - Skin ulcer [Unknown]
  - Nausea [Not Recovered/Not Resolved]
  - Lymphocyte count decreased [Unknown]
  - Cyst [Unknown]
  - Impaired healing [Not Recovered/Not Resolved]
  - Flushing [Recovered/Resolved]

NARRATIVE: CASE EVENT DATE: 2016
